FAERS Safety Report 5973574-7 (Version None)
Quarter: 2008Q4

REPORT INFORMATION
  Report Type: 
  Country: None (occurrence: None)
  Receive Date: 20081201
  Receipt Date: 20080117
  Transmission Date: 20090506
  Serious: No
  Sender: FDA-Public Use
  Company Number: US-AMGEN-KDL261100

PATIENT
  Sex: Male

DRUGS (4)
  1. ENBREL [Suspect]
     Indication: PSORIATIC ARTHROPATHY
     Dates: start: 20041022
  2. ENBREL [Suspect]
     Indication: PSORIASIS
  3. METHOTREXATE [Concomitant]
     Dates: start: 20020101
  4. PREDNISONE TAB [Concomitant]

REACTIONS (4)
  - HEPATIC ENZYME INCREASED [None]
  - PSORIASIS [None]
  - PSORIATIC ARTHROPATHY [None]
  - SWELLING FACE [None]
